FAERS Safety Report 24716782 (Version 1)
Quarter: 2024Q4

REPORT INFORMATION
  Report Type: Report from Study
  Country: US (occurrence: US)
  Receive Date: 20241210
  Receipt Date: 20241210
  Transmission Date: 20250114
  Serious: Yes (Hospitalization)
  Sender: GILEAD
  Company Number: US-GILEAD-2024-0696517

PATIENT
  Age: 82 Year
  Sex: Male

DRUGS (1)
  1. AZTREONAM LYSINE [Suspect]
     Active Substance: AZTREONAM LYSINE
     Indication: Product used for unknown indication
     Dosage: INHALE 1 ML (75 MG) VIA ALTERA NEBULIZER THREE TIMES DAILY. ALTERNATE 28 DAYS (ON), THEN STOP FOR 28
     Route: 055

REACTIONS (1)
  - Lung disorder [Unknown]
